FAERS Safety Report 7618852-0 (Version None)
Quarter: 2011Q3

REPORT INFORMATION
  Report Type: 
  Country: None (occurrence: None)
  Receive Date: 20110718
  Receipt Date: 20110707
  Transmission Date: 20111222
  Serious: Yes (Death)
  Sender: FDA-Public Use
  Company Number: NL-GENZYME-CLOF-1001671

PATIENT
  Sex: Female
  Weight: 62 kg

DRUGS (6)
  1. CYTARABINE [Suspect]
     Indication: ACUTE MYELOID LEUKAEMIA
     Dosage: 1700 MG, BID
     Route: 042
     Dates: start: 20110530, end: 20110604
  2. VALACICLOVIR [Concomitant]
     Indication: PROPHYLAXIS
     Dosage: 500 MG, QD; 2DD
     Route: 048
     Dates: start: 20110407, end: 20110617
  3. EVOLTRA [Suspect]
     Indication: ACUTE MYELOID LEUKAEMIA
     Dosage: 17 MG, QD
     Route: 042
     Dates: start: 20110530, end: 20110603
  4. ITRACONAZOLE [Concomitant]
     Indication: PROPHYLAXIS
     Dosage: 200 MG, UNK; 1DD
     Route: 048
     Dates: start: 20110407, end: 20110617
  5. COTRIM [Concomitant]
     Indication: PROPHYLAXIS
     Dosage: 480 MG, UNK; 1DD
     Route: 048
     Dates: start: 20110407, end: 20110617
  6. AMSACRINE [Suspect]
     Indication: ACUTE MYELOID LEUKAEMIA
     Dosage: 210 MG, QD
     Route: 042
     Dates: start: 20110602, end: 20110604

REACTIONS (1)
  - EPILEPSY [None]
